FAERS Safety Report 8395782-0 (Version None)
Quarter: 2012Q2

REPORT INFORMATION
  Report Type: 
  Country: None (occurrence: None)
  Receive Date: 20120525
  Receipt Date: 20120525
  Transmission Date: 20120825
  Serious: Yes (Life-Threatening)
  Sender: FDA-Public Use
  Company Number: None

PATIENT
  Age: 28 Year
  Sex: Female

DRUGS (1)
  1. MIRENA [Suspect]

REACTIONS (15)
  - MALAISE [None]
  - HYPERTENSION [None]
  - BLOOD URINE PRESENT [None]
  - VOMITING [None]
  - DIZZINESS [None]
  - URTICARIA [None]
  - DRUG INEFFECTIVE [None]
  - CYSTITIS [None]
  - RESPIRATORY DISORDER [None]
  - EMOTIONAL DISORDER [None]
  - CRYING [None]
  - DEPRESSION [None]
  - ACTIVITIES OF DAILY LIVING IMPAIRED [None]
  - WEIGHT DECREASED [None]
  - HAEMORRHAGE [None]
